FAERS Safety Report 5882835-1 (Version None)
Quarter: 2008Q3

REPORT INFORMATION
  Report Type: 
  Country: None (occurrence: None)
  Receive Date: 20080913
  Receipt Date: 20080815
  Transmission Date: 20090109
  Serious: No
  Sender: FDA-Public Use
  Company Number: US-ABBOTT-08P-163-0471208-00

PATIENT
  Sex: Female
  Weight: 71.959 kg

DRUGS (13)
  1. HUMIRA [Suspect]
     Indication: RHEUMATOID ARTHRITIS
     Route: 058
     Dates: start: 20070501
  2. ESOMEPRAZOLE MAGNESIUM [Concomitant]
     Indication: GASTROOESOPHAGEAL REFLUX DISEASE
     Route: 048
     Dates: start: 19740101
  3. BREVA [Concomitant]
     Indication: ASTHMA
     Dosage: 14.7GRAMS/200 AS NEEDED
     Route: 055
     Dates: start: 19980101
  4. TRAVANATAN EYE DROPS [Concomitant]
     Indication: GLAUCOMA
     Dosage: 1 DROP EACH EYE AT NIGHT
     Route: 048
     Dates: start: 19960101
  5. VICODIN [Concomitant]
     Indication: PAIN
     Dosage: 10/500 EVERY 6 HOURS AS NEEDED
     Route: 048
     Dates: start: 20070501
  6. OPANA ER [Concomitant]
     Indication: PAIN
     Route: 048
     Dates: start: 20080601
  7. PAROXETINE HCL [Concomitant]
     Indication: DEPRESSION
     Route: 048
     Dates: start: 19980101
  8. ALPRAZOLAM [Concomitant]
     Indication: ANXIETY
     Route: 048
     Dates: start: 20070501
  9. PRAMIPEXOLE DIHYDROCHLORIDE [Concomitant]
     Indication: RESTLESS LEGS SYNDROME
     Dosage: AT BEDTIME
     Route: 048
     Dates: start: 20080201
  10. ZOLPIDEM TARTRATE [Concomitant]
     Indication: SLEEP DISORDER THERAPY
     Dosage: AT NIGHT
     Route: 048
     Dates: start: 20080201
  11. TIZANIDINE HYDROCHLORIDE [Concomitant]
     Indication: PAIN
     Route: 048
     Dates: start: 20070101
  12. LIDOCAINE [Concomitant]
     Indication: PAIN
     Route: 061
     Dates: start: 20080401
  13. ZORBEN JUNIOR CREAM [Concomitant]
     Indication: PAIN
     Route: 061

REACTIONS (9)
  - APNOEA [None]
  - CHILLS [None]
  - COUGH [None]
  - FATIGUE [None]
  - INJECTION SITE HAEMATOMA [None]
  - INJECTION SITE HAEMORRHAGE [None]
  - INJECTION SITE PAIN [None]
  - PNEUMONIA [None]
  - PYREXIA [None]
